FAERS Safety Report 8623291-X (Version None)
Quarter: 2012Q3

REPORT INFORMATION
  Report Type: 
  Country: None (occurrence: None)
  Receive Date: 20120827
  Receipt Date: 20120820
  Transmission Date: 20120928
  Serious: No
  Sender: FDA-Public Use
  Company Number: US-B.I. PHARMACEUTICALS,INC./RIDGEFIELD-2012-BP-20618PF

PATIENT

DRUGS (3)
  1. SPIRIVA [Suspect]
  2. LYRICA [Suspect]
  3. ALDACTONE [Suspect]

REACTIONS (3)
  - MIGRAINE [None]
  - NERVE INJURY [None]
  - PAIN IN EXTREMITY [None]
